FAERS Safety Report 19476689 (Version 2)
Quarter: 2021Q3

REPORT INFORMATION
  Report Type: Report from Study
  Country: US (occurrence: US)
  Receive Date: 20210630
  Receipt Date: 20210706
  Transmission Date: 20211014
  Serious: No
  Sender: FDA-Public Use
  Company Number: NVSC2021US136588

PATIENT
  Age: 57 Year
  Sex: Male

DRUGS (3)
  1. MARIJUANA [Concomitant]
     Active Substance: CANNABIS SATIVA SUBSP. INDICA TOP
     Indication: PRODUCT USED FOR UNKNOWN INDICATION
     Dosage: UNK, QD(I PUFF EVERY NIGHT)
     Route: 065
  2. ENTRESTO [Suspect]
     Active Substance: SACUBITRIL\VALSARTAN
     Route: 065
  3. ENTRESTO [Suspect]
     Active Substance: SACUBITRIL\VALSARTAN
     Indication: PRODUCT USED FOR UNKNOWN INDICATION
     Dosage: 100 MG(49/51)
     Route: 065

REACTIONS (9)
  - Weight increased [Unknown]
  - Decreased appetite [Unknown]
  - Renal function test normal [Unknown]
  - Fluid retention [Unknown]
  - Hypertension [Unknown]
  - Energy increased [Unknown]
  - Cough [Unknown]
  - Weight decreased [Unknown]
  - Insomnia [Unknown]
